FAERS Safety Report 5476739-6 (Version None)
Quarter: 2007Q4

REPORT INFORMATION
  Report Type: 
  Country: None (occurrence: None)
  Receive Date: 20071004
  Receipt Date: 20070926
  Transmission Date: 20080405
  Serious: Yes (Death)
  Sender: FDA-Public Use
  Company Number: JP-SP-2007-03261

PATIENT
  Sex: Male

DRUGS (10)
  1. IMMUCYST [Suspect]
     Indication: BLADDER CANCER
     Route: 043
     Dates: start: 20060120, end: 20060301
  2. IMMUCYST [Suspect]
     Route: 043
     Dates: start: 20060120, end: 20060301
  3. IMMUCYST [Suspect]
     Route: 043
     Dates: start: 20060120, end: 20060301
  4. NICORANDIL [Concomitant]
     Dates: start: 20060120, end: 20060323
  5. ISOSORBIDE DINITRATE [Concomitant]
     Dates: start: 20060120, end: 20060323
  6. CANDESARTAN CILEXETIL [Concomitant]
     Dates: start: 20060120, end: 20060323
  7. ATORVASTATIN CALCIUM [Concomitant]
     Dates: start: 20060120, end: 20060323
  8. TEPRENONE [Concomitant]
     Dates: start: 20060120, end: 20060323
  9. LEVOTHYROXINE SODIUM [Concomitant]
     Dates: start: 20060120, end: 20060323
  10. ASPIRIN [Concomitant]
     Dates: start: 20060120, end: 20060323

REACTIONS (4)
  - CHILLS [None]
  - DYSURIA [None]
  - POLLAKIURIA [None]
  - PYURIA [None]
